FAERS Safety Report 16675230 (Version 2)
Quarter: 2019Q3

REPORT INFORMATION
  Report Type: Spontaneous
  Country: IT (occurrence: IT)
  Receive Date: 20190806
  Receipt Date: 20190812
  Transmission Date: 20191004
  Serious: Yes (Death, Other)
  Sender: FDA-Public Use
  Company Number: IT-MYLANLABS-2019M1073535

PATIENT
  Age: 30 Year
  Sex: Male

DRUGS (17)
  1. PROCARBAZINE [Suspect]
     Active Substance: PROCARBAZINE
     Indication: B-CELL LYMPHOMA
     Dosage: UNK, (4 COURSES OF C-MOPP)
  2. CYCLOPHOSPHAMIDE. [Suspect]
     Active Substance: CYCLOPHOSPHAMIDE
     Indication: B-CELL LYMPHOMA
     Dosage: UNK (4 COURSES OF C-MOPP)
  3. MECHLORETHAMINE HYDROCHLORIDE [Suspect]
     Active Substance: MECHLORETHAMINE HYDROCHLORIDE
     Indication: B-CELL LYMPHOMA
     Dosage: UNK (4 COURSES)
  4. VINCRISTINE SULFATE. [Suspect]
     Active Substance: VINCRISTINE SULFATE
     Dosage: UNK (8 COURSES)
  5. CHLORAMBUCIL [Suspect]
     Active Substance: CHLORAMBUCIL
     Indication: B-CELL LYMPHOMA
     Dosage: UNK
  6. BLEOMYCIN [Suspect]
     Active Substance: BLEOMYCIN SULFATE
     Indication: B-CELL LYMPHOMA
     Dosage: UNK (4 COURSES OF BACOP)
  7. ETOPOSIDE. [Suspect]
     Active Substance: ETOPOSIDE
     Indication: NON-HODGKIN^S LYMPHOMA
     Dosage: UNK (THREE COURSES OF IVA REGIMEN)
  8. CYCLOPHOSPHAMIDE. [Suspect]
     Active Substance: CYCLOPHOSPHAMIDE
     Dosage: UNK(8 COURSES)
  9. PREDNISONE. [Suspect]
     Active Substance: PREDNISONE
     Dosage: UNK (EIGHT COURSES)
  10. PREDNISONE. [Suspect]
     Active Substance: PREDNISONE
     Dosage: UNK (4 COURSES OF BACOP)
  11. VINCRISTINE SULFATE. [Suspect]
     Active Substance: VINCRISTINE SULFATE
     Indication: B-CELL LYMPHOMA
     Dosage: UNK (4 COURSES OF BACOP)
  12. PREDNISOLONE. [Suspect]
     Active Substance: PREDNISOLONE
     Indication: B-CELL LYMPHOMA
     Dosage: UNK (8 COURSES)
  13. MITOXANTRONE [Suspect]
     Active Substance: MITOXANTRONE HYDROCHLORIDE
     Indication: B-CELL LYMPHOMA
     Dosage: UNK(FOUR COURSES)
  14. IDARUBICIN HYDROCHLORIDE. [Suspect]
     Active Substance: IDARUBICIN HYDROCHLORIDE
     Indication: NON-HODGKIN^S LYMPHOMA
     Dosage: UNK (THREE COURSES OF IVA REGIMEN)
  15. PREDNISONE. [Suspect]
     Active Substance: PREDNISONE
     Indication: B-CELL LYMPHOMA
     Dosage: UNK (4 COURSES OF C-MOPP)
  16. VINCRISTINE SULFATE. [Suspect]
     Active Substance: VINCRISTINE SULFATE
     Dosage: UNK (4 COURSES OF C-MOPP)
  17. CYTARABINE. [Suspect]
     Active Substance: CYTARABINE
     Indication: B-CELL LYMPHOMA
     Dosage: UNK (THREE COURSES OF IVA REGIMEN)

REACTIONS (3)
  - Second primary malignancy [Fatal]
  - Splenic rupture [Fatal]
  - Epstein-Barr virus associated lymphoma [Fatal]
